FAERS Safety Report 6293572-6 (Version None)
Quarter: 2009Q3

REPORT INFORMATION
  Report Type: 
  Country: None (occurrence: None)
  Receive Date: 20090729
  Receipt Date: 20090707
  Transmission Date: 20100115
  Serious: Yes (Other)
  Sender: FDA-Public Use
  Company Number: JPI-P-007893

PATIENT
  Age: 1 Year
  Sex: Male

DRUGS (1)
  1. LUVOX [Suspect]
     Indication: ACCIDENTAL EXPOSURE
     Dosage: 100 MG, ONCE, ORAL
     Route: 048
     Dates: start: 20090701, end: 20090701

REACTIONS (3)
  - ACCIDENTAL DRUG INTAKE BY CHILD [None]
  - CONVULSION [None]
  - VOMITING [None]
